FAERS Safety Report 11628173 (Version 1)
Quarter: 2015Q4

REPORT INFORMATION
  Report Type: Spontaneous
  Country: GB (occurrence: GB)
  Receive Date: 20151014
  Receipt Date: 20151014
  Transmission Date: 20160304
  Serious: Yes (Hospitalization)
  Sender: FDA-Public Use
  Company Number: GB-WATSON-2015-21746

PATIENT
  Age: 71 Year
  Sex: Male

DRUGS (4)
  1. OLANZAPINE (UNKNOWN) [Suspect]
     Active Substance: OLANZAPINE
     Dosage: 2.5 MG, QPM
     Route: 048
     Dates: start: 20150610
  2. OLANZAPINE (UNKNOWN) [Suspect]
     Active Substance: OLANZAPINE
     Indication: PRODUCT USED FOR UNKNOWN INDICATION
     Dosage: 5 MG, QPM
     Route: 048
     Dates: end: 20150905
  3. MIRTAZAPINE. [Concomitant]
     Active Substance: MIRTAZAPINE
     Indication: PRODUCT USED FOR UNKNOWN INDICATION
     Dosage: UNK (LONG TERM)
     Route: 065
  4. RAMIPRIL (UNKNOWN) [Suspect]
     Active Substance: RAMIPRIL
     Indication: PRODUCT USED FOR UNKNOWN INDICATION
     Dosage: 5 MG, UNK
     Route: 048

REACTIONS (1)
  - Hepatic enzyme abnormal [Not Recovered/Not Resolved]

NARRATIVE: CASE EVENT DATE: 20150728
